FAERS Safety Report 12062010 (Version 1)
Quarter: 2016Q1

REPORT INFORMATION
  Report Type: Spontaneous
  Country: US (occurrence: US)
  Receive Date: 20160210
  Receipt Date: 20160210
  Transmission Date: 20160526
  Serious: Yes (Death)
  Sender: FDA-Public Use
  Company Number: US-PERRIGO-16US001338

PATIENT
  Age: 24 Year
  Sex: Female

DRUGS (3)
  1. DEXTROMETHORPHAN HBR W/GUAIFENESIN [Suspect]
     Active Substance: DEXTROMETHORPHAN HYDROBROMIDE\GUAIFENESIN
     Indication: DRUG ABUSE
     Dosage: UNK
     Route: 048
  2. DEXTROMETHORPHAN [Suspect]
     Active Substance: DEXTROMETHORPHAN
     Indication: DRUG ABUSE
  3. ACETAMINOPHEN. [Suspect]
     Active Substance: ACETAMINOPHEN
     Indication: DRUG ABUSE
     Dosage: UNK
     Route: 048

REACTIONS (1)
  - Death [Fatal]
